FAERS Safety Report 18082620 (Version 1)
Quarter: 2020Q3

REPORT INFORMATION
  Report Type: Other
  Country: AU (occurrence: AU)
  Receive Date: 20200729
  Receipt Date: 20200729
  Transmission Date: 20201103
  Serious: Yes (Hospitalization)
  Sender: FDA-Public Use
  Company Number: AU-VISTA PHARMACEUTICALS INC.-2087878

PATIENT
  Age: 61 Year
  Sex: Male

DRUGS (8)
  1. MEROPENEM. [Concomitant]
     Active Substance: MEROPENEM
     Route: 042
  2. DOXYCYCLINE. [Concomitant]
     Active Substance: DOXYCYCLINE
     Route: 048
  3. SULFAMETHOXAZOLE AND TRIMETHOPRIM [Suspect]
     Active Substance: SULFAMETHOXAZOLE\TRIMETHOPRIM
     Indication: BURKHOLDERIA PSEUDOMALLEI INFECTION
     Route: 048
  4. CEFTRIAXONE. [Concomitant]
     Active Substance: CEFTRIAXONE
     Route: 065
  5. VANCOMYCIN HYDROCHLORIDE. [Concomitant]
     Active Substance: VANCOMYCIN HYDROCHLORIDE
     Route: 042
  6. NORADRENALINE [Concomitant]
     Active Substance: NOREPINEPHRINE
     Route: 042
  7. GENTAMYCIN [Concomitant]
     Active Substance: GENTAMICIN
     Route: 065
  8. AZITHROMYCIN ANHYDROUS. [Concomitant]
     Active Substance: AZITHROMYCIN ANHYDROUS
     Route: 048

REACTIONS (1)
  - Fixed eruption [Unknown]
